FAERS Safety Report 6423079-4 (Version None)
Quarter: 2009Q4

REPORT INFORMATION
  Report Type: 
  Country: None (occurrence: None)
  Receive Date: 20091028
  Receipt Date: 20091017
  Transmission Date: 20100525
  Serious: Yes (Other)
  Sender: FDA-Public Use
  Company Number: 2009AP004218

PATIENT
  Sex: Female

DRUGS (2)
  1. ALENDRONATE SODIUM [Suspect]
     Dosage: 70 MG; QW;
  2. ESTROGENS CONJUGATED [Concomitant]

REACTIONS (5)
  - ARTHRALGIA [None]
  - BONE FORMATION DECREASED [None]
  - FEMUR FRACTURE [None]
  - PAIN IN EXTREMITY [None]
  - STRESS FRACTURE [None]
